FAERS Safety Report 21229428 (Version 4)
Quarter: 2022Q3

REPORT INFORMATION
  Report Type: Spontaneous
  Country: US (occurrence: US)
  Receive Date: 20220818
  Receipt Date: 20220823
  Transmission Date: 20221026
  Serious: Yes (Hospitalization, Other)
  Sender: FDA-Public Use
  Company Number: US-PFIZER INC-202201064978

PATIENT
  Age: 49 Year
  Sex: Female
  Weight: 107.5 kg

DRUGS (1)
  1. GABAPENTIN [Suspect]
     Active Substance: GABAPENTIN
     Indication: Neuralgia
     Dosage: UNK

REACTIONS (5)
  - Loss of consciousness [Unknown]
  - Loss of consciousness [Unknown]
  - Off label use [Unknown]
  - Therapy cessation [Unknown]
  - Memory impairment [Not Recovered/Not Resolved]
